FAERS Safety Report 9521629 (Version 1)
Quarter: 2013Q3

REPORT INFORMATION
  Report Type: Report from Study
  Country: BR (occurrence: BR)
  Receive Date: 20130913
  Receipt Date: 20130913
  Transmission Date: 20140515
  Serious: Yes (Other)
  Sender: FDA-Public Use
  Company Number: PHHY2013BR101315

PATIENT
  Sex: Male

DRUGS (5)
  1. DIOVAN [Suspect]
     Dosage: ONCE DAILY
  2. DIOVAN [Suspect]
     Dosage: 0.5 DF, UNK
  3. SOMALGIN [Concomitant]
     Dosage: 100 MG, UNK
  4. SOTACOR [Concomitant]
     Dosage: 200 MG, UNK
  5. PLAVIX [Concomitant]

REACTIONS (3)
  - Gastrointestinal obstruction [Unknown]
  - Ischaemia [Recovering/Resolving]
  - Wrong technique in drug usage process [Unknown]
